FAERS Safety Report 8202811-3 (Version None)
Quarter: 2012Q1

REPORT INFORMATION
  Report Type: 
  Country: None (occurrence: None)
  Receive Date: 20120312
  Receipt Date: 20120312
  Transmission Date: 20120608
  Serious: Yes (Life-Threatening)
  Sender: FDA-Public Use
  Company Number: None

PATIENT
  Age: 86 Year
  Sex: Female
  Weight: 55.5 kg

DRUGS (15)
  1. TERIPARATIDE [Concomitant]
     Dosage: 20 MCG
     Route: 058
  2. LASIX [Concomitant]
  3. ACETAMINOPHEN [Concomitant]
  4. TRENTAL [Concomitant]
     Route: 048
  5. OMEPRAZOLE [Concomitant]
  6. LOSARTAN POTASSIUM [Concomitant]
  7. MAGNESIUM [Concomitant]
  8. GABAPENTIN [Concomitant]
  9. TERIPARATIDE [Suspect]
     Indication: OSTEOPOROSIS
     Dosage: 20 MCG
     Route: 058
  10. METOPROLOL SUCCINATE [Concomitant]
     Route: 048
  11. PRILOSEC [Concomitant]
  12. CIPRO [Concomitant]
  13. PREDNISONE [Concomitant]
  14. WARFARIN SODIUM [Concomitant]
  15. FAREX [Concomitant]

REACTIONS (6)
  - ERYTHEMA [None]
  - CONDITION AGGRAVATED [None]
  - NO THERAPEUTIC RESPONSE [None]
  - SKIN ULCER [None]
  - OEDEMA PERIPHERAL [None]
  - CALCIPHYLAXIS [None]
